FAERS Safety Report 17136647 (Version 2)
Quarter: 2019Q4

REPORT INFORMATION
  Report Type: Report from Study
  Country: CA (occurrence: CA)
  Receive Date: 20191210
  Receipt Date: 20191219
  Transmission Date: 20200122
  Serious: Yes (Hospitalization, Other)
  Sender: FDA-Public Use
  Company Number: CA-MYLANLABS-2019M1107496

PATIENT
  Age: 37 Year
  Sex: Female
  Weight: 102 kg

DRUGS (15)
  1. RIVOTRIL [Concomitant]
     Active Substance: CLONAZEPAM
     Dosage: 0.5 MILLIGRAM, AS NEEDED
  2. COGENTIN [Concomitant]
     Active Substance: BENZTROPINE MESYLATE
     Dosage: 0.5 MORNING AND BEDTIME 16
  3. HALDOL [Concomitant]
     Active Substance: HALOPERIDOL
     Dosage: 7.5 MILLIGRAM, QD
     Route: 048
  4. HALDOL                             /00027403/ [Concomitant]
     Dosage: 125 MILLIGRAM, 28D CYCLE
     Route: 030
     Dates: end: 201908
  5. ABILIFY [Concomitant]
     Active Substance: ARIPIPRAZOLE
     Dosage: 15 MILLIGRAM, QD
     Route: 048
  6. CLOZAPINE. [Suspect]
     Active Substance: CLOZAPINE
     Indication: SCHIZOPHRENIA
     Dosage: 87.5 MILLIGRAM, QD
     Route: 048
     Dates: start: 20191011, end: 20191028
  7. CLOZAPINE. [Suspect]
     Active Substance: CLOZAPINE
     Dosage: 25 MILLIGRAM, PM
     Dates: start: 201910, end: 20191103
  8. GLUMETZA [Concomitant]
     Active Substance: METFORMIN HYDROCHLORIDE
     Dosage: 1000 MILLIGRAM, QD
     Route: 048
  9. DEXILANT [Concomitant]
     Active Substance: DEXLANSOPRAZOLE
     Dosage: 30 MILLIGRAM, QD
     Route: 048
  10. HALDOL [Concomitant]
     Active Substance: HALOPERIDOL
     Dosage: 5 MILLIGRAM, QD
     Route: 048
  11. CLOZAPINE. [Suspect]
     Active Substance: CLOZAPINE
     Dosage: 62.5 MILLIGRAM, PM
     Dates: start: 201910, end: 20191103
  12. CLOZAPINE. [Suspect]
     Active Substance: CLOZAPINE
     Dosage: UNK
     Dates: start: 20191018, end: 20191103
  13. COLACE [Concomitant]
     Active Substance: DOCUSATE SODIUM
     Dosage: 200 MILLIGRAM, PM,AT BEDTIME
     Route: 048
  14. CLOZAPINE. [Suspect]
     Active Substance: CLOZAPINE
     Indication: SCHIZOAFFECTIVE DISORDER
     Dosage: 12.5 MILLIGRAM, AM
     Dates: start: 201910, end: 20191103
  15. EFFEXOR [Concomitant]
     Active Substance: VENLAFAXINE HYDROCHLORIDE
     Dosage: 150 MILLIGRAM, QD
     Route: 048

REACTIONS (5)
  - Fatigue [Unknown]
  - Dyspnoea [Unknown]
  - Myocarditis [Unknown]
  - Tachycardia [Unknown]
  - Chest pain [Unknown]

NARRATIVE: CASE EVENT DATE: 2019
